FAERS Safety Report 4389280-9 (Version None)
Quarter: 2004Q2

REPORT INFORMATION
  Report Type: 
  Country: None (occurrence: None)
  Receive Date: 20040624
  Receipt Date: 20040616
  Transmission Date: 20050107
  Serious: Yes (Hospitalization)
  Sender: FDA-Public Use
  Company Number: CEL-2004-00637-ROC

PATIENT
  Age: 3 Month
  Sex: Female
  Weight: 5 kg

DRUGS (6)
  1. PEDIAPRED [Suspect]
     Indication: HAEMANGIOMA
     Dosage: 10MG, TWICE PER DAY, PO
     Route: 048
     Dates: start: 20000105, end: 20000524
  2. METHYLPREDNISOLONE [Suspect]
     Indication: HAEMANGIOMA
     Dosage: 8MG, TWICE PER DAY, IV
     Route: 042
     Dates: start: 20000105, end: 20000109
  3. DECADRON [Concomitant]
  4. HEPARIN [Concomitant]
  5. LORAZEPAM [Concomitant]
  6. ZANTAC [Concomitant]

REACTIONS (12)
  - BLOOD LACTATE DEHYDROGENASE INCREASED [None]
  - BLOOD PH INCREASED [None]
  - CD4 LYMPHOCYTES DECREASED [None]
  - EPENDYMOMA [None]
  - HYPOXIA [None]
  - INTERCOSTAL RETRACTION [None]
  - MONOCYTE PERCENTAGE DECREASED [None]
  - NEUTROPHIL PERCENTAGE INCREASED [None]
  - PNEUMOCYSTIS CARINII PNEUMONIA [None]
  - RESPIRATORY DISTRESS [None]
  - RESPIRATORY RATE INCREASED [None]
  - WHITE BLOOD CELL COUNT DECREASED [None]
